FAERS Safety Report 6129049-8 (Version None)
Quarter: 2009Q1

REPORT INFORMATION
  Report Type: 
  Country: None (occurrence: None)
  Receive Date: 20090324
  Receipt Date: 20090320
  Transmission Date: 20090719
  Serious: Yes (Life-Threatening)
  Sender: FDA-Public Use
  Company Number: US-JNJFOC-20090305584

PATIENT
  Age: 11 Year
  Sex: Female
  Weight: 29.48 kg

DRUGS (2)
  1. CONCERTA [Suspect]
     Indication: ATTENTION DEFICIT/HYPERACTIVITY DISORDER
     Route: 048
  2. LEXAPRO [Concomitant]
     Indication: ANXIETY
     Route: 048

REACTIONS (3)
  - GRANDIOSITY [None]
  - HALLUCINATION [None]
  - SUICIDAL IDEATION [None]
